FAERS Safety Report 7410628-2 (Version None)
Quarter: 2011Q2

REPORT INFORMATION
  Report Type: 
  Country: None (occurrence: None)
  Receive Date: 20110413
  Receipt Date: 20110329
  Transmission Date: 20111010
  Serious: Yes (Death, Hospitalization)
  Sender: FDA-Public Use
  Company Number: US-CELGENEUS-163-21880-11030563

PATIENT
  Sex: Male
  Weight: 115 kg

DRUGS (29)
  1. ONDASETRON [Concomitant]
     Indication: NAUSEA
     Dosage: 8 MILLIGRAM
     Route: 051
     Dates: start: 20110302
  2. SPIRONOLACTONE [Concomitant]
     Indication: DIURETIC THERAPY
     Dosage: 25 MILLIGRAM
     Route: 051
     Dates: start: 20110302, end: 20110320
  3. FUROSEMIDE [Concomitant]
     Indication: FLUID RETENTION
     Dosage: 20 MILLIGRAM
     Route: 051
     Dates: start: 20110302, end: 20110321
  4. ENALAPRILAT [Concomitant]
     Indication: HYPERTENSION
     Dosage: 1.25 MILLIGRAM
     Route: 051
     Dates: start: 20110302
  5. ATIVAN [Concomitant]
     Dosage: 1 MILLIGRAM
     Route: 051
     Dates: start: 20110321, end: 20110321
  6. FLAGYL [Concomitant]
     Indication: INFECTION
     Dosage: 500 MILLIGRAM
     Route: 051
     Dates: start: 20110318, end: 20110321
  7. GEMCITABINE [Suspect]
     Route: 065
     Dates: start: 20100901, end: 20101115
  8. RITUXIMAB [Suspect]
     Route: 065
     Dates: start: 20100901, end: 20101115
  9. SOLU-MEDROL [Concomitant]
     Indication: PREMEDICATION
     Dosage: 40 MILLIGRAM
     Route: 051
     Dates: start: 20110303
  10. BICARBONATE [Concomitant]
     Indication: METABOLIC ACIDOSIS
     Dosage: 1 AMP
     Route: 051
     Dates: start: 20110321, end: 20110321
  11. AMBIEN [Concomitant]
     Indication: INSOMNIA
     Dosage: 10 MILLIGRAM
     Route: 048
     Dates: start: 20110313, end: 20110316
  12. PRIMAXIN [Concomitant]
     Indication: INFECTION
     Dosage: 500 MILLIGRAM
     Route: 051
     Dates: start: 20110307, end: 20110315
  13. PLATELETS [Concomitant]
     Dosage: 20 UNITS
     Route: 051
     Dates: start: 20110316, end: 20110316
  14. PLATELETS [Concomitant]
     Dosage: 10 UNITS
     Route: 051
     Dates: start: 20110319, end: 20110319
  15. OXALIPLATIN [Suspect]
     Route: 065
     Dates: start: 20100901, end: 20101115
  16. ONDASETRON [Concomitant]
     Indication: VOMITING
  17. PLATELETS [Concomitant]
     Dosage: 10 UNITS
     Route: 051
     Dates: start: 20110313, end: 20110313
  18. ZOSYN [Concomitant]
     Indication: INFECTION
     Dosage: 3.375 GRAM
     Route: 051
     Dates: start: 20110303
  19. LEVETIRACETAM [Concomitant]
     Indication: CONVULSION
     Dosage: 500 MILLIGRAM
     Route: 051
     Dates: start: 20110302, end: 20110320
  20. INTROPIN [Concomitant]
     Route: 051
     Dates: start: 20110318, end: 20110321
  21. CLARITIN [Concomitant]
     Dosage: 10 MILLIGRAM
     Route: 051
     Dates: start: 20110306, end: 20110320
  22. PLATELETS [Concomitant]
     Dosage: 10 UNITS
     Route: 051
     Dates: start: 20110314, end: 20110314
  23. RED BLOOD CELLS [Concomitant]
     Route: 051
     Dates: start: 20110308, end: 20110309
  24. REVLIMID [Suspect]
     Dosage: 25 MILLIGRAM
     Route: 048
     Dates: start: 20101130
  25. FAMOTIDINE [Concomitant]
     Indication: GASTROOESOPHAGEAL REFLUX PROPHYLAXIS
     Dosage: 20 MILLIGRAM
     Route: 051
     Dates: start: 20110302
  26. MORPHINE [Concomitant]
     Dosage: 5 MILLIGRAM
     Route: 051
     Dates: start: 20110321, end: 20110321
  27. BRONCONAL [Concomitant]
     Dosage: 25 MILLIGRAM
     Route: 051
     Dates: start: 20110307, end: 20110307
  28. REVLIMID [Suspect]
     Dosage: 25 MILLIGRAM
     Route: 048
     Dates: start: 20110105, end: 20110107
  29. DIPHENHYDRAMINE [Concomitant]
     Indication: PREMEDICATION
     Dosage: 25 MILLIGRAM
     Route: 051
     Dates: start: 20110303

REACTIONS (3)
  - LYMPHOMA [None]
  - CLOSTRIDIUM DIFFICILE SEPSIS [None]
  - PNEUMONIA [None]
